FAERS Safety Report 15295793 (Version 3)
Quarter: 2019Q2

REPORT INFORMATION
  Report Type: Spontaneous
  Country: GB (occurrence: GB)
  Receive Date: 20180820
  Receipt Date: 20190403
  Transmission Date: 20190711
  Serious: Yes (Other)
  Sender: FDA-Public Use
  Company Number: PHHY2018GB074239

PATIENT
  Age: 22 Year
  Sex: Male

DRUGS (1)
  1. RITALIN [Suspect]
     Active Substance: METHYLPHENIDATE HYDROCHLORIDE
     Indication: PRODUCT USED FOR UNKNOWN INDICATION
     Dosage: UNK
     Route: 065

REACTIONS (11)
  - Pain in extremity [Unknown]
  - Joint swelling [Unknown]
  - General physical health deterioration [Unknown]
  - Arthritis [Unknown]
  - Depression [Unknown]
  - Eating disorder [Unknown]
  - Hepatic failure [Unknown]
  - Renal failure [Unknown]
  - Ankylosing spondylitis [Unknown]
  - Growing pains [Unknown]
  - Spinal pain [Unknown]

NARRATIVE: CASE EVENT DATE: 2005
